FAERS Safety Report 9363952 (Version 1)
Quarter: 2013Q2

REPORT INFORMATION
  Report Type: Report from Study
  Country: JP (occurrence: JP)
  Receive Date: 20130624
  Receipt Date: 20130624
  Transmission Date: 20140414
  Serious: No
  Sender: FDA-Public Use
  Company Number: JP-JNJFOC-20130612473

PATIENT
  Age: 66 Year
  Sex: Male
  Weight: 78 kg

DRUGS (10)
  1. DUROTEP MT [Suspect]
     Indication: PAIN
     Route: 062
     Dates: start: 20110729
  2. DUROTEP MT [Suspect]
     Indication: PAIN
     Route: 062
     Dates: start: 20110613, end: 20110728
  3. DUROTEP MT [Suspect]
     Indication: PAIN
     Route: 062
     Dates: start: 20100924, end: 20101127
  4. DUROTEP MT [Suspect]
     Indication: PAIN
     Route: 062
     Dates: start: 20100910, end: 20100910
  5. LYRICA [Concomitant]
     Indication: PAIN
     Route: 048
     Dates: end: 20100923
  6. LYRICA [Concomitant]
     Indication: PAIN
     Route: 048
     Dates: start: 20100924
  7. NOVAMIN [Concomitant]
     Route: 048
     Dates: start: 20100917, end: 20101202
  8. PURSENNID [Concomitant]
     Route: 048
     Dates: start: 20101022, end: 20101202
  9. MAGMITT [Concomitant]
     Route: 048
     Dates: start: 20101022
  10. LAXOBERON [Concomitant]
     Route: 048
     Dates: start: 20101203, end: 20110429

REACTIONS (5)
  - Nausea [Recovered/Resolved]
  - Constipation [Not Recovered/Not Resolved]
  - Somnolence [Recovering/Resolving]
  - Malaise [Not Recovered/Not Resolved]
  - Wrong technique in drug usage process [Unknown]
